FAERS Safety Report 14475990 (Version 1)
Quarter: 2018Q1

REPORT INFORMATION
  Report Type: Spontaneous
  Country: PT (occurrence: PT)
  Receive Date: 20180201
  Receipt Date: 20180201
  Transmission Date: 20180509
  Serious: Yes (Other)
  Sender: FDA-Public Use
  Company Number: PT-MYLANLABS-2018M1006677

PATIENT
  Age: 55 Year
  Sex: Female

DRUGS (4)
  1. IBUPROFEN. [Suspect]
     Active Substance: IBUPROFEN
     Indication: RHINALGIA
     Dosage: UNK
     Route: 048
     Dates: start: 201604, end: 201604
  2. ANSITEN [Concomitant]
     Indication: PRODUCT USED FOR UNKNOWN INDICATION
     Dosage: UNK
     Route: 048
  3. SIMVASTATIN. [Concomitant]
     Active Substance: SIMVASTATIN
     Indication: PRODUCT USED FOR UNKNOWN INDICATION
     Dosage: UNK
     Route: 048
  4. CONCOR [Concomitant]
     Active Substance: BISOPROLOL FUMARATE
     Indication: PRODUCT USED FOR UNKNOWN INDICATION
     Dosage: UNK
     Route: 048

REACTIONS (4)
  - Pharyngeal oedema [Recovered/Resolved]
  - Dyspnoea [Recovered/Resolved]
  - Face oedema [Recovered/Resolved]
  - Stridor [Recovered/Resolved]

NARRATIVE: CASE EVENT DATE: 201604
